FAERS Safety Report 4435115-5 (Version None)
Quarter: 2004Q3

REPORT INFORMATION
  Report Type: 
  Country: None (occurrence: None)
  Receive Date: 20040826
  Receipt Date: 20040826
  Transmission Date: 20050211
  Serious: Yes (Hospitalization)
  Sender: FDA-Public Use
  Company Number: None

PATIENT
  Age: 53 Year
  Sex: Female

DRUGS (1)
  1. ZYPREXA [Suspect]
     Indication: PSYCHOTIC DISORDER
     Dosage: 10 MG Q DAILY ORAL
     Route: 048
     Dates: start: 20040615, end: 20040621

REACTIONS (3)
  - CHEST PAIN [None]
  - DIZZINESS [None]
  - DYSPNOEA [None]
